FAERS Safety Report 16101045 (Version 2)
Quarter: 2019Q1

REPORT INFORMATION
  Report Type: Report from Study
  Country: US (occurrence: US)
  Receive Date: 20190321
  Receipt Date: 20190325
  Transmission Date: 20190418
  Serious: Yes (Other)
  Sender: FDA-Public Use
  Company Number: US-GILEAD-2019-0397439

PATIENT
  Age: 52 Year
  Sex: Male

DRUGS (26)
  1. METOCLOPRAM [Concomitant]
     Active Substance: METOCLOPRAMIDE
  2. COLISTIMETHATE [COLISTIMETHATE SODIUM] [Concomitant]
  3. AZTREONAM LYSINE [Suspect]
     Active Substance: AZTREONAM LYSINE
     Indication: CYSTIC FIBROSIS
     Dosage: 75 MG, TID
     Route: 055
     Dates: start: 20130823
  4. APAP;HYDROCODONE [Concomitant]
  5. DESONIDE. [Concomitant]
     Active Substance: DESONIDE
  6. PANTOPRAZOLE [Concomitant]
     Active Substance: PANTOPRAZOLE
  7. AZITHROMYCIN ANHYDROUS. [Concomitant]
     Active Substance: AZITHROMYCIN ANHYDROUS
  8. PREDNISONE. [Concomitant]
     Active Substance: PREDNISONE
  9. PULMOZYME [Concomitant]
     Active Substance: DORNASE ALFA
  10. HUMALOG [Concomitant]
     Active Substance: INSULIN LISPRO
  11. ULTRAM [PARACETAMOL;TRAMADOL HYDROCHLORIDE] [Concomitant]
     Active Substance: ACETAMINOPHEN\TRAMADOL HYDROCHLORIDE
  12. SYMDEKO [Concomitant]
     Active Substance: IVACAFTOR\TEZACAFTOR
  13. CLARITHROMYCIN. [Concomitant]
     Active Substance: CLARITHROMYCIN
  14. RESTASIS [Concomitant]
     Active Substance: CYCLOSPORINE
  15. OXYCODONE [Concomitant]
     Active Substance: OXYCODONE
  16. LOSARTAN. [Concomitant]
     Active Substance: LOSARTAN
  17. LEVAQUIN [Concomitant]
     Active Substance: LEVOFLOXACIN
  18. HYDROCHLOROTHIAZIDE. [Concomitant]
     Active Substance: HYDROCHLOROTHIAZIDE
  19. URSODIOL. [Concomitant]
     Active Substance: URSODIOL
  20. SODIUM CHLORIDE. [Concomitant]
     Active Substance: SODIUM CHLORIDE
  21. HUMULIN NOS [Concomitant]
     Active Substance: INSULIN HUMAN
  22. AMLODIPINE [Concomitant]
     Active Substance: AMLODIPINE BESYLATE
  23. ADVAIR HFA [Concomitant]
     Active Substance: FLUTICASONE PROPIONATE\SALMETEROL XINAFOATE
  24. METHYLPRED [Concomitant]
     Active Substance: METHYLPREDNISOLONE
  25. CREON [Concomitant]
     Active Substance: PANCRELIPASE AMYLASE\PANCRELIPASE LIPASE\PANCRELIPASE PROTEASE
  26. CLINDAMYCIN. [Concomitant]
     Active Substance: CLINDAMYCIN

REACTIONS (2)
  - Intentional product use issue [Unknown]
  - Central venous catheterisation [Recovered/Resolved]
